FAERS Safety Report 8600820-3 (Version None)
Quarter: 2012Q3

REPORT INFORMATION
  Report Type: 
  Country: None (occurrence: None)
  Receive Date: 20120817
  Receipt Date: 20120808
  Transmission Date: 20120928
  Serious: Yes (Death, Hospitalization)
  Sender: FDA-Public Use
  Company Number: US-AMGEN-USASP2012051309

PATIENT
  Age: 82 Year
  Sex: Female

DRUGS (4)
  1. PROCRIT [Suspect]
     Indication: ANAEMIA
     Dosage: 20000 IU, ONE TIME DOSE
     Route: 058
     Dates: start: 20100522, end: 20100522
  2. ALBUMIN [Suspect]
     Dosage: UNK
     Dates: start: 20100101
  3. LEVAQUIN [Suspect]
     Dosage: UNK
     Dates: start: 20080101
  4. LASIX [Suspect]
     Dosage: UNK
     Dates: start: 20100101

REACTIONS (1)
  - PNEUMONIA [None]
